FAERS Safety Report 8856241 (Version 1)
Quarter: 2012Q4

REPORT INFORMATION
  Report Type: 
  Country: US (occurrence: US)
  Receive Date: 20121023
  Receipt Date: 20121023
  Transmission Date: 20130627
  Serious: No
  Sender: FDA-Public Use
  Company Number: US-AMGEN-USASP2012057508

PATIENT
  Age: 58 Year
  Sex: Female
  Weight: 53 kg

DRUGS (10)
  1. ENBREL [Suspect]
     Indication: RHEUMATOID ARTHRITIS
     Dosage: 25 mg, 2 times/wk
  2. HUMIRA [Concomitant]
     Dosage: 40 mg, UNK40 Mg/0.8
     Route: 058
  3. NEURONTIN [Concomitant]
     Dosage: 300 mg, UNK
     Route: 048
  4. PRILOSEC                           /00661201/ [Concomitant]
     Dosage: 20 mg, UNK
     Route: 048
  5. MELOXICAM [Concomitant]
     Dosage: 15 mg, UNK
     Route: 048
  6. CYMBALTA [Concomitant]
     Dosage: 20 mg, UNK
     Route: 048
  7. LISINOPRIL [Concomitant]
     Dosage: 10 mg, UNK
     Route: 048
  8. PREMPRO [Concomitant]
     Dosage: 0.625-2.5 UNK, UNK
     Route: 048
  9. BENADRYL                           /00000402/ [Concomitant]
     Dosage: 25 mg, UNK
     Route: 048
  10. TYLENOL /00020001/ [Concomitant]
     Dosage: 650 mg, tid
     Route: 048

REACTIONS (1)
  - Therapeutic response decreased [Unknown]
